FAERS Safety Report 5599884-3 (Version None)
Quarter: 2008Q1

REPORT INFORMATION
  Report Type: 
  Country: None (occurrence: None)
  Receive Date: 20080123
  Receipt Date: 20080122
  Transmission Date: 20080703
  Serious: Yes (Other)
  Sender: FDA-Public Use
  Company Number: US-BRISTOL-MYERS SQUIBB COMPANY-14050199

PATIENT
  Age: 39 Year
  Sex: Female

DRUGS (2)
  1. CYCLOPHOSPHAMIDE [Suspect]
     Indication: STEM CELL TRANSPLANT
     Dosage: ON DAYS 2 TO 4
     Route: 042
  2. BUSULFAN [Suspect]
     Indication: STEM CELL TRANSPLANT
     Dosage: 0.75MG/KG.DOSE EVERY 6 HRS FOR 16 DOSES ON DAYS 4 TO 7
     Route: 048

REACTIONS (2)
  - ALOPECIA [None]
  - CHRONIC GRAFT VERSUS HOST DISEASE [None]
